FAERS Safety Report 10191595 (Version 1)
Quarter: 2014Q2

REPORT INFORMATION
  Report Type: Spontaneous
  Country: US (occurrence: US)
  Receive Date: 20140523
  Receipt Date: 20140523
  Transmission Date: 20141212
  Serious: Yes (Other)
  Sender: FDA-Public Use
  Company Number: US-PFIZER INC-2014140051

PATIENT
  Age: 91 Year
  Sex: Male
  Weight: 65.76 kg

DRUGS (3)
  1. PRISTIQ [Suspect]
     Indication: DEPRESSION
     Dosage: 50 MG, 1X/DAY
     Route: 048
     Dates: start: 20140513, end: 20140514
  2. CLONAZEPAM [Concomitant]
     Dosage: UNK
  3. REMERON [Concomitant]
     Dosage: UNK

REACTIONS (1)
  - Dysphagia [Unknown]
